FAERS Safety Report 8131902-0 (Version None)
Quarter: 2012Q1

REPORT INFORMATION
  Report Type: 
  Country: None (occurrence: None)
  Receive Date: 20120213
  Receipt Date: 20120208
  Transmission Date: 20120608
  Serious: Yes (Hospitalization)
  Sender: FDA-Public Use
  Company Number: CH-PFIZER INC-2012034189

PATIENT
  Age: 68 Year
  Sex: Female

DRUGS (4)
  1. ERBITUX [Suspect]
     Indication: LARYNGEAL CANCER
     Dosage: 650 MG, SINGLE
     Route: 051
     Dates: start: 20111027, end: 20111027
  2. ERBITUX [Suspect]
     Dosage: 400 MG, SINGLE
     Route: 051
     Dates: start: 20111111, end: 20111111
  3. ARMODAFINIL [Suspect]
     Dosage: 200 MG, 1X/DAY
     Route: 051
     Dates: start: 20111111, end: 20111111
  4. ERBITUX [Suspect]
     Dosage: 400 MG, SINGLE
     Route: 051
     Dates: start: 20111104, end: 20111104

REACTIONS (3)
  - CARDIO-RESPIRATORY ARREST [None]
  - STRESS CARDIOMYOPATHY [None]
  - ANAPHYLACTIC REACTION [None]
